FAERS Safety Report 7641082-3 (Version None)
Quarter: 2011Q3

REPORT INFORMATION
  Report Type: 
  Country: None (occurrence: None)
  Receive Date: 20110728
  Receipt Date: 20110726
  Transmission Date: 20111222
  Serious: Yes (Other)
  Sender: FDA-Public Use
  Company Number: US-BRISTOL-MYERS SQUIBB COMPANY-15799315

PATIENT
  Age: 64 Year
  Sex: Female
  Weight: 110 kg

DRUGS (7)
  1. ONGLYZA [Suspect]
     Indication: DIABETES MELLITUS
     Dosage: FOR 3 DAYS
     Route: 048
     Dates: start: 20110412
  2. LISINOPRIL [Concomitant]
  3. METFORMIN HCL [Concomitant]
  4. METOPROLOL TARTRATE [Concomitant]
  5. VITAMIN TAB [Concomitant]
  6. VITAMIN B-12 [Concomitant]
  7. ASPIRIN [Concomitant]

REACTIONS (3)
  - CHEST PAIN [None]
  - TREMOR [None]
  - CONSTIPATION [None]
